FAERS Safety Report 10769280 (Version 1)
Quarter: 2015Q1

REPORT INFORMATION
  Report Type: Report from Study
  Country: DE (occurrence: DE)
  Receive Date: 20150206
  Receipt Date: 20150206
  Transmission Date: 20150721
  Serious: Yes (Congenital Anomaly, Other)
  Sender: FDA-Public Use
  Company Number: DE-ABBVIE-15P-062-1340993-00

PATIENT
  Age: 0 Year
  Weight: .9 kg

DRUGS (1)
  1. HUMIRA [Suspect]
     Active Substance: ADALIMUMAB
     Indication: MATERNAL EXPOSURE TIMING UNSPECIFIED
     Route: 064

REACTIONS (9)
  - Foetal exposure during pregnancy [Unknown]
  - Coma [Recovered/Resolved]
  - Cardiac septal defect [Unknown]
  - Renal impairment [Recovered/Resolved]
  - Foetal chromosome abnormality [Unknown]
  - Low birth weight baby [Unknown]
  - Pulmonary haemorrhage [Recovered/Resolved]
  - Speech disorder [Unknown]
  - Abasia [Unknown]

NARRATIVE: CASE EVENT DATE: 2013
